FAERS Safety Report 10182667 (Version 1)
Quarter: 2014Q2

REPORT INFORMATION
  Report Type: Spontaneous
  Country: US (occurrence: None)
  Receive Date: 20140519
  Receipt Date: 20140519
  Transmission Date: 20141212
  Serious: Yes (Other)
  Sender: FDA-Public Use
  Company Number: None

PATIENT
  Age: 46 Year
  Sex: Female
  Weight: 48.99 kg

DRUGS (1)
  1. BISACODYL [Suspect]
     Indication: CONSTIPATION
     Dosage: 1 PILL, ONCE DAILY, TAKEN BY MOUTH
     Route: 048

REACTIONS (6)
  - Dyspepsia [None]
  - Syncope [None]
  - Pain [None]
  - Loss of consciousness [None]
  - Hyperhidrosis [None]
  - Malaise [None]
